FAERS Safety Report 6466683-X (Version None)
Quarter: 2009Q4

REPORT INFORMATION
  Report Type: 
  Country: None (occurrence: None)
  Receive Date: 20091201
  Receipt Date: 20091201
  Transmission Date: 20100525
  Serious: Yes (Other)
  Sender: FDA-Public Use
  Company Number: None

PATIENT
  Age: 23 Year
  Sex: Female
  Weight: 47.6277 kg

DRUGS (2)
  1. YASMIN [Suspect]
     Indication: MENSTRUATION IRREGULAR
     Dosage: ONE PILL DAILY PO
     Route: 048
     Dates: start: 20010101, end: 20040301
  2. YAZ [Suspect]
     Indication: MENSTRUATION IRREGULAR
     Dosage: ONE PILL DAILY PO
     Route: 048
     Dates: start: 20070315, end: 20090901

REACTIONS (14)
  - CARDIAC DISORDER [None]
  - CHOLECYSTECTOMY [None]
  - CHOLELITHIASIS [None]
  - DEHYDRATION [None]
  - DIARRHOEA [None]
  - DYSPNOEA [None]
  - GASTRIC DISORDER [None]
  - HEART RATE INCREASED [None]
  - HYPOAESTHESIA [None]
  - MIGRAINE [None]
  - NERVOUS SYSTEM DISORDER [None]
  - PERIPHERAL COLDNESS [None]
  - PRESYNCOPE [None]
  - SKIN DISCOLOURATION [None]
